FAERS Safety Report 16296213 (Version 1)
Quarter: 2019Q2

REPORT INFORMATION
  Report Type: Spontaneous
  Country: US (occurrence: US)
  Receive Date: 20190509
  Receipt Date: 20190509
  Transmission Date: 20190711
  Serious: Yes (Disabling)
  Sender: FDA-Public Use
  Company Number: None

PATIENT
  Age: 53 Year
  Sex: Male
  Weight: 74.25 kg

DRUGS (1)
  1. XTAMPZA ER [Suspect]
     Active Substance: OXYCODONE
     Indication: PAIN
     Dosage: ?          QUANTITY:60 CAPSULE(S);?
     Route: 048
     Dates: start: 20190318, end: 20190323

REACTIONS (5)
  - Gastric disorder [None]
  - Drug ineffective [None]
  - Abdominal pain upper [None]
  - Nausea [None]
  - Product complaint [None]

NARRATIVE: CASE EVENT DATE: 20190318
